FAERS Safety Report 8587567-7 (Version None)
Quarter: 2012Q3

REPORT INFORMATION
  Report Type: 
  Country: None (occurrence: None)
  Receive Date: 20120810
  Receipt Date: 20120727
  Transmission Date: 20120928
  Serious: Yes (Other)
  Sender: FDA-Public Use
  Company Number: US-009507513-1207USA011966

PATIENT

DRUGS (13)
  1. HYDROCODONE BITARTRATE [Suspect]
     Dosage: 5 MG/ 325MGUNK
  2. DEPAKOTE [Concomitant]
  3. NEXIUM [Suspect]
     Route: 048
  4. PROLIA [Suspect]
     Dosage: 7 MON
  5. CALCIUM (UNSPECIFIED) (+) VITAMIN D (UNSPECIFIED) [Concomitant]
  6. CELEXA [Suspect]
     Dosage: UNK
  7. LAMICTAL [Concomitant]
  8. RHINOCORT [Suspect]
     Route: 045
  9. SYMBICORT [Suspect]
     Route: 055
  10. HYDROCODONE BITARTRATE [Suspect]
     Dosage: 10MG / 325MG
  11. REQUIP [Concomitant]
  12. PRINIVIL [Suspect]
     Route: 048
  13. LIPITOR [Concomitant]
     Route: 048

REACTIONS (20)
  - MULTIPLE FRACTURES [None]
  - ABDOMINAL DISCOMFORT [None]
  - PARAESTHESIA [None]
  - NERVE COMPRESSION [None]
  - MALAISE [None]
  - BONE FRAGMENTATION [None]
  - DRUG INTOLERANCE [None]
  - INTERVERTEBRAL DISC PROTRUSION [None]
  - OSTEOPOROSIS [None]
  - PAIN [None]
  - TINNITUS [None]
  - ACTIVITIES OF DAILY LIVING IMPAIRED [None]
  - DRUG INEFFECTIVE [None]
  - MASTOID DISORDER [None]
  - DYSSTASIA [None]
  - GAIT DISTURBANCE [None]
  - HEARING IMPAIRED [None]
  - WEIGHT INCREASED [None]
  - INTERVERTEBRAL DISC DISORDER [None]
  - BACK PAIN [None]
